FAERS Safety Report 5224431-5 (Version None)
Quarter: 2007Q1

REPORT INFORMATION
  Report Type: 
  Country: None (occurrence: None)
  Receive Date: 20070130
  Receipt Date: 20070119
  Transmission Date: 20070707
  Serious: Yes (Other)
  Sender: FDA-Public Use
  Company Number: GB-PFIZER INC-2007001996

PATIENT
  Sex: Male
  Weight: 71 kg

DRUGS (3)
  1. EXUBERA [Suspect]
     Indication: DIABETES MELLITUS
     Dosage: DAILY DOSE:10MG
     Route: 055
  2. EXUBERA [Suspect]
     Indication: DIABETES MELLITUS INSULIN-DEPENDENT
  3. ALL OTHER THERAPEUTIC PRODUCTS [Concomitant]
     Indication: RENAL TRANSPLANT

REACTIONS (2)
  - BLOOD GLUCOSE INCREASED [None]
  - LOWER RESPIRATORY TRACT INFECTION [None]
